FAERS Safety Report 17763358 (Version 2)
Quarter: 2020Q3

REPORT INFORMATION
  Report Type: Spontaneous
  Country: US (occurrence: US)
  Receive Date: 20200509
  Receipt Date: 20200701
  Transmission Date: 20201102
  Serious: Yes (Other)
  Sender: FDA-Public Use
  Company Number: US-TEVA-2020-US-1233602

PATIENT
  Age: 77 Year
  Sex: Female

DRUGS (5)
  1. MYRBETRIQ [Interacting]
     Active Substance: MIRABEGRON
     Dosage: 50 MILLIGRAM DAILY;
     Route: 065
     Dates: start: 201912
  2. MYRBETRIQ [Interacting]
     Active Substance: MIRABEGRON
     Indication: HYPERTONIC BLADDER
     Dosage: 25 MILLIGRAM DAILY;
     Route: 065
  3. METOPROLOL. [Suspect]
     Active Substance: METOPROLOL
     Indication: BLOOD PRESSURE ABNORMAL
     Route: 065
  4. AZO [Concomitant]
     Active Substance: PHENAZOPYRIDINE HYDROCHLORIDE
  5. URISTAT [Concomitant]
     Active Substance: PHENAZOPYRIDINE HYDROCHLORIDE

REACTIONS (4)
  - Drug interaction [Unknown]
  - Blood pressure increased [Unknown]
  - Drug ineffective [Unknown]
  - Oedema peripheral [Unknown]
